FAERS Safety Report 12325631 (Version 1)
Quarter: 2016Q2

REPORT INFORMATION
  Report Type: Spontaneous
  Country: US (occurrence: US)
  Receive Date: 20160503
  Receipt Date: 20160503
  Transmission Date: 20160815
  Serious: No
  Sender: FDA-Public Use
  Company Number: US-LUPIN PHARMACEUTICALS INC.-E2B_00003704

PATIENT
  Age: 68 Year
  Sex: Male
  Weight: 81.72 kg

DRUGS (4)
  1. IBUPROFEN. [Concomitant]
     Active Substance: IBUPROFEN
     Indication: PRODUCT USED FOR UNKNOWN INDICATION
  2. QUETIAPINE FUMARATE TABLETS 25 MG [Suspect]
     Active Substance: QUETIAPINE FUMARATE
     Indication: INSOMNIA
     Dosage: 12.5-25MG ONCE DAILY AT BEDTIME
  3. METOPROLOL. [Concomitant]
     Active Substance: METOPROLOL
     Indication: HYPERTENSION
  4. METHADONE [Concomitant]
     Active Substance: METHADONE HYDROCHLORIDE
     Indication: PRODUCT USED FOR UNKNOWN INDICATION

REACTIONS (1)
  - Drug screen false positive [Not Recovered/Not Resolved]

NARRATIVE: CASE EVENT DATE: 201504
